FAERS Safety Report 17212386 (Version 1)
Quarter: 2019Q4

REPORT INFORMATION
  Report Type: Spontaneous
  Country: US (occurrence: US)
  Receive Date: 20191230
  Receipt Date: 20191230
  Transmission Date: 20200122
  Serious: No
  Sender: FDA-Public Use
  Company Number: US-ACCORD-161990

PATIENT
  Age: 69 Year
  Sex: Female
  Weight: 88.45 kg

DRUGS (2)
  1. ARIPIPRAZOLE. [Suspect]
     Active Substance: ARIPIPRAZOLE
     Indication: DEPRESSION
     Dosage: ONCE A DAY AT NIGHT
     Dates: start: 20191020, end: 20191024
  2. VALIUM [Concomitant]
     Active Substance: DIAZEPAM

REACTIONS (3)
  - Pain [Recovered/Resolved]
  - Somnolence [Recovered/Resolved]
  - Muscular weakness [Recovered/Resolved]
